FAERS Safety Report 8899098 (Version 1)
Quarter: 2012Q4

REPORT INFORMATION
  Report Type: 
  Country: US (occurrence: US)
  Receive Date: 20121108
  Receipt Date: 20121108
  Transmission Date: 20130627
  Serious: No
  Sender: FDA-Public Use
  Company Number: US-AMGEN-USASP2012033605

PATIENT
  Age: 57 Year
  Sex: Female
  Weight: 113.38 kg

DRUGS (12)
  1. ENBREL [Suspect]
     Indication: PRODUCT USED FOR UNKNOWN INDICATION
     Dosage: 50 mg, qwk
     Route: 058
  2. NAPROSYN /00256201/ [Concomitant]
     Dosage: 250 mg, UNK
  3. XANAX [Concomitant]
     Dosage: 1 mg, UNK
  4. PLAQUENIL                          /00072602/ [Concomitant]
     Dosage: 200 mg, UNK
  5. METHOTREXATE [Concomitant]
     Dosage: 2.5 mg, UNK
  6. ARMOUR THYROID [Concomitant]
     Dosage: 15 mg, UNK
  7. SAVELLA [Concomitant]
     Dosage: 100 mg, UNK
  8. LEXAPRO [Concomitant]
     Dosage: 20 mg, UNK
  9. PREDNISONE [Concomitant]
     Dosage: 10 mg, UNK
  10. FLAXSEED OIL [Concomitant]
     Dosage: UNK
  11. HYDROCODONE W/APAP                 /00607101/ [Concomitant]
     Dosage: UNK
  12. TRAMADOL HCL [Concomitant]
     Dosage: 300 mg, UNK

REACTIONS (2)
  - Injection site erythema [Recovered/Resolved]
  - Injection site swelling [Recovered/Resolved]
